FAERS Safety Report 21274353 (Version 1)
Quarter: 2022Q3

REPORT INFORMATION
  Report Type: Spontaneous
  Country: US (occurrence: None)
  Receive Date: 20220830
  Receipt Date: 20220830
  Transmission Date: 20221027
  Serious: No
  Sender: FDA-Public Use
  Company Number: None

PATIENT
  Sex: Female

DRUGS (1)
  1. AMBRISENTAN [Suspect]
     Active Substance: AMBRISENTAN
     Dosage: FREQUENCY : DAILY;?
     Route: 048

REACTIONS (8)
  - Nonspecific reaction [None]
  - Fatigue [None]
  - Poor quality sleep [None]
  - Heart rate increased [None]
  - Decreased appetite [None]
  - Hypotension [None]
  - Depression [None]
  - Dry mouth [None]
